FAERS Safety Report 9774338 (Version 1)
Quarter: 2013Q4

REPORT INFORMATION
  Report Type: Spontaneous
  Country: US (occurrence: None)
  Receive Date: 20131219
  Receipt Date: 20131219
  Transmission Date: 20140711
  Serious: Yes (Death)
  Sender: FDA-Public Use
  Company Number: None

PATIENT
  Age: 77 Year
  Sex: Female
  Weight: 52 kg

DRUGS (1)
  1. ERBITUX [Suspect]
     Indication: LARYNGEAL SQUAMOUS CELL CARCINOMA
     Dates: start: 20131016, end: 20131016

REACTIONS (5)
  - Tachycardia [None]
  - Skin discolouration [None]
  - Malaise [None]
  - Cardiac arrest [None]
  - Cardio-respiratory arrest [None]
